FAERS Safety Report 14356351 (Version 1)
Quarter: 2018Q1

REPORT INFORMATION
  Report Type: Spontaneous
  Country: US (occurrence: US)
  Receive Date: 20180105
  Receipt Date: 20180105
  Transmission Date: 20180509
  Serious: Yes (Hospitalization)
  Sender: FDA-Public Use
  Company Number: None

PATIENT
  Age: 79 Year
  Sex: Female
  Weight: 63.5 kg

DRUGS (12)
  1. PEPCID [Concomitant]
     Active Substance: FAMOTIDINE
  2. ASPIRIN. [Concomitant]
     Active Substance: ASPIRIN
  3. TRAMADOL. [Concomitant]
     Active Substance: TRAMADOL
  4. BANATROL PLUS [Concomitant]
  5. CHOLECALCIFEROL [Concomitant]
     Active Substance: CHOLECALCIFEROL
  6. VITAMIN D3 [Concomitant]
     Active Substance: CHOLECALCIFEROL
  7. ATENOLOL. [Concomitant]
     Active Substance: ATENOLOL
  8. ALIVE MULTIVITAMIN [Concomitant]
  9. BOOST [Concomitant]
     Active Substance: DIETARY SUPPLEMENT
  10. XERMELO [Suspect]
     Active Substance: TELOTRISTAT ETHYL
     Indication: DIARRHOEA
     Dosage: 250 MG 3 TABLETS ONE AFTER EACH MEAL BY MOUTH
     Route: 048
     Dates: start: 20171111, end: 20171212
  11. DILTIAZEM. [Concomitant]
     Active Substance: DILTIAZEM
  12. GATORADE [Concomitant]
     Active Substance: CARBOHYDRATES\ELECTROLYTES NOS\VITAMINS

REACTIONS (10)
  - Vision blurred [None]
  - Rash [None]
  - Dyspnoea [None]
  - Muscular weakness [None]
  - Breast pain [None]
  - Depression [None]
  - Peripheral swelling [None]
  - Diarrhoea [None]
  - Abdominal pain [None]
  - Hypertension [None]

NARRATIVE: CASE EVENT DATE: 20171211
